FAERS Safety Report 21033589 (Version 2)
Quarter: 2022Q3

REPORT INFORMATION
  Report Type: Spontaneous
  Country: DE (occurrence: DE)
  Receive Date: 20220701
  Receipt Date: 20220809
  Transmission Date: 20221027
  Serious: Yes (Disabling, Other)
  Sender: FDA-Public Use
  Company Number: None

PATIENT
  Age: 9 Day
  Sex: Female
  Weight: 12 kg

DRUGS (1)
  1. CYTOTEC [Suspect]
     Active Substance: MISOPROSTOL
     Indication: Preterm premature rupture of membranes
     Dosage: 200 UG, FROM 10:00 TO ABOUT 19:00
     Route: 064
     Dates: start: 20200110, end: 20200110

REACTIONS (7)
  - Foetal exposure during delivery [Not Recovered/Not Resolved]
  - Hemiparesis [Not Recovered/Not Resolved]
  - Right hemisphere deficit syndrome [Not Recovered/Not Resolved]
  - Hypertonia neonatal [Not Recovered/Not Resolved]
  - Perinatal stroke [Recovered/Resolved with Sequelae]
  - Gliosis [Recovered/Resolved with Sequelae]
  - Head deformity [Unknown]

NARRATIVE: CASE EVENT DATE: 20200110
